FAERS Safety Report 24965255 (Version 1)
Quarter: 2025Q1

REPORT INFORMATION
  Report Type: Spontaneous
  Country: US (occurrence: US)
  Receive Date: 20250213
  Receipt Date: 20250213
  Transmission Date: 20250408
  Serious: No
  Sender: TEVA
  Company Number: US-TEVA-VS-3290856

PATIENT
  Age: 67 Year
  Sex: Female

DRUGS (1)
  1. BACLOFEN [Suspect]
     Active Substance: BACLOFEN
     Indication: Product used for unknown indication
     Route: 048

REACTIONS (4)
  - Food allergy [Unknown]
  - Skin hypertrophy [Unknown]
  - Circumstance or information capable of leading to medication error [Unknown]
  - Adverse event [Unknown]
